FAERS Safety Report 6272108-X (Version None)
Quarter: 2009Q3

REPORT INFORMATION
  Report Type: 
  Country: None (occurrence: None)
  Receive Date: 20090717
  Receipt Date: 20090706
  Transmission Date: 20100115
  Serious: Yes (Other)
  Sender: FDA-Public Use
  Company Number: B0583980A

PATIENT
  Age: 30 Year
  Sex: Male

DRUGS (7)
  1. EUNOVA MULTIVITAMIN DRAGEES [Suspect]
     Indication: DRUG USE FOR UNKNOWN INDICATION
     Dosage: 15TAB PER DAY
     Route: 048
     Dates: start: 20090703, end: 20090703
  2. AMOXICILLIN AND CLAVULANATE POTASSIUM [Suspect]
     Indication: DRUG USE FOR UNKNOWN INDICATION
     Dosage: 2TAB PER DAY
     Route: 048
     Dates: start: 20090703, end: 20090703
  3. CIPROFLOXACIN [Suspect]
     Indication: DRUG USE FOR UNKNOWN INDICATION
     Dosage: 1500MG PER DAY
     Route: 048
     Dates: start: 20090703, end: 20090703
  4. DIAZEPAM [Suspect]
     Indication: DRUG USE FOR UNKNOWN INDICATION
     Dosage: 12MG PER DAY
     Route: 048
     Dates: start: 20090703, end: 20090703
  5. DOXYCYCLINE [Suspect]
     Indication: DRUG USE FOR UNKNOWN INDICATION
     Dosage: 2000MG PER DAY
     Route: 048
     Dates: start: 20090703, end: 20090703
  6. LORATADINE [Suspect]
     Indication: DRUG USE FOR UNKNOWN INDICATION
     Dosage: 100MG PER DAY
     Route: 048
     Dates: start: 20090703, end: 20090703
  7. PARACETAMOL [Suspect]
     Indication: DRUG USE FOR UNKNOWN INDICATION
     Dosage: 2500MG PER DAY
     Route: 048
     Dates: start: 20090703, end: 20090703

REACTIONS (3)
  - INTENTIONAL DRUG MISUSE [None]
  - INTENTIONAL SELF-INJURY [None]
  - SUICIDAL IDEATION [None]
